FAERS Safety Report 24335037 (Version 2)
Quarter: 2024Q3

REPORT INFORMATION
  Report Type: Report from Study
  Country: GB (occurrence: GB)
  Receive Date: 20240918
  Receipt Date: 20240923
  Transmission Date: 20241017
  Serious: Yes (Other)
  Sender: SAMSUNG BIOEPIS
  Company Number: GB-SAMSUNG BIOEPIS-SB-2024-27137

PATIENT
  Age: 37 Year
  Sex: Male

DRUGS (1)
  1. IMRALDI [Suspect]
     Active Substance: ADALIMUMAB
     Indication: Axial spondyloarthritis
     Dosage: 40 MG/0.8 ML;
     Route: 058

REACTIONS (3)
  - Malignant peritoneal neoplasm [Not Recovered/Not Resolved]
  - Appendix cancer [Not Recovered/Not Resolved]
  - Illness [Not Recovered/Not Resolved]
